FAERS Safety Report 12581208 (Version 3)
Quarter: 2021Q3

REPORT INFORMATION
  Report Type: Report from Study
  Country: US (occurrence: US)
  Receive Date: 20160721
  Receipt Date: 20210831
  Transmission Date: 20211014
  Serious: Yes (Hospitalization)
  Sender: FDA-Public Use
  Company Number: US-CELGENEUS-USA-2016073789

PATIENT
  Age: 80 Year
  Sex: Female

DRUGS (3)
  1. DECADRON [Suspect]
     Active Substance: DEXAMETHASONE
     Indication: PLASMA CELL MYELOMA
     Dosage: 20 MILLIGRAM
     Route: 048
     Dates: start: 20121017, end: 20121031
  2. THALOMID [Suspect]
     Active Substance: THALIDOMIDE
     Indication: PLASMA CELL MYELOMA
     Dosage: 50 MILLIGRAM
     Route: 048
     Dates: start: 20110907, end: 20120913
  3. VELCADE [Suspect]
     Active Substance: BORTEZOMIB
     Indication: PLASMA CELL MYELOMA
     Dosage: 1.3 MILLIGRAM/SQ. METER
     Route: 058
     Dates: start: 20121017, end: 20121031

REACTIONS (2)
  - Back pain [Recovered/Resolved]
  - Waldenstrom^s macroglobulinaemia [Recovered/Resolved]

NARRATIVE: CASE EVENT DATE: 20121107
